FAERS Safety Report 11662290 (Version 1)
Quarter: 2015Q4

REPORT INFORMATION
  Report Type: Report from Study
  Country: GR (occurrence: GR)
  Receive Date: 20151027
  Receipt Date: 20151027
  Transmission Date: 20160304
  Serious: Yes (Death)
  Sender: FDA-Public Use
  Company Number: GR-TAKEDA-2015TUS014685

PATIENT

DRUGS (2)
  1. COLCHICINE. [Suspect]
     Active Substance: COLCHICINE
     Indication: ACUTE MYOCARDIAL INFARCTION
     Dosage: 2 MG, UNK
     Route: 065
  2. COLCHICINE. [Suspect]
     Active Substance: COLCHICINE
     Dosage: 0.5 MG, QD
     Route: 065

REACTIONS (2)
  - Off label use [Unknown]
  - Death [Fatal]
